FAERS Safety Report 19855699 (Version 1)
Quarter: 2021Q3

REPORT INFORMATION
  Report Type: Report from Study
  Country: US (occurrence: US)
  Receive Date: 20210920
  Receipt Date: 20210920
  Transmission Date: 20211014
  Serious: No
  Sender: FDA-Public Use
  Company Number: US-IPSEN BIOPHARMACEUTICALS, INC.-2021-22311

PATIENT
  Age: 28 Year
  Sex: Female

DRUGS (2)
  1. SOMATULINE DEPOT [Suspect]
     Active Substance: LANREOTIDE ACETATE
     Indication: OFF LABEL USE
  2. SOMATULINE DEPOT [Suspect]
     Active Substance: LANREOTIDE ACETATE
     Indication: PANCREATIC CARCINOMA
     Dosage: 120 MG/0.5 ML
     Route: 058
     Dates: start: 202012

REACTIONS (5)
  - Arthralgia [Recovering/Resolving]
  - Fatigue [Recovering/Resolving]
  - Blood glucose abnormal [Recovering/Resolving]
  - Pain [Recovering/Resolving]
  - Off label use [Unknown]

NARRATIVE: CASE EVENT DATE: 202012
